FAERS Safety Report 7808901-9 (Version None)
Quarter: 2011Q4

REPORT INFORMATION
  Report Type: 
  Country: None (occurrence: None)
  Receive Date: 20111012
  Receipt Date: 20111004
  Transmission Date: 20120403
  Serious: Yes (Other)
  Sender: FDA-Public Use
  Company Number: US-AMGEN-USASP2011051210

PATIENT
  Sex: Female

DRUGS (4)
  1. NAPROXEN [Concomitant]
     Dosage: UNK
  2. PREDNISONE [Concomitant]
     Dosage: UNK
  3. ENBREL [Suspect]
     Indication: PRODUCT USED FOR UNKNOWN INDICATION
     Dosage: UNK MG, UNK
  4. MULTIVITAMIN                       /00097801/ [Concomitant]
     Dosage: UNK

REACTIONS (8)
  - URTICARIA [None]
  - LIP SWELLING [None]
  - OSTEOMYELITIS [None]
  - PAIN [None]
  - SWELLING FACE [None]
  - INJECTION SITE PAIN [None]
  - EYE SWELLING [None]
  - OSTEOMYELITIS CHRONIC [None]
